FAERS Safety Report 7468125-4 (Version None)
Quarter: 2011Q2

REPORT INFORMATION
  Report Type: 
  Country: None (occurrence: None)
  Receive Date: 20110509
  Receipt Date: 20110502
  Transmission Date: 20111010
  Serious: Yes (Hospitalization)
  Sender: FDA-Public Use
  Company Number: US-ELI_LILLY_AND_COMPANY-US201103004996

PATIENT
  Sex: Male
  Weight: 74.376 kg

DRUGS (7)
  1. ASPIRIN [Concomitant]
     Dosage: 81 MG, UNKNOWN
     Route: 065
  2. EFFIENT [Suspect]
     Indication: PERCUTANEOUS CORONARY INTERVENTION
     Dosage: 10 MG, DAILY (1/D)
     Dates: start: 20110310
  3. LISINOPRIL [Concomitant]
     Dosage: 10 MG, UNKNOWN
     Route: 065
  4. PLAVIX [Concomitant]
     Indication: STENT PLACEMENT
     Dosage: UNK, UNKNOWN
  5. METOPROLOL TARTRATE [Concomitant]
     Dosage: 50 MG, UNKNOWN
     Route: 065
  6. SIMVASTATIN [Concomitant]
     Dosage: 40 MG, UNKNOWN
     Route: 065
  7. PROTONIX [Concomitant]
     Dosage: 40 MG, UNKNOWN
     Route: 065

REACTIONS (4)
  - VOMITING [None]
  - ABDOMINAL PAIN [None]
  - DIARRHOEA [None]
  - NAUSEA [None]
